FAERS Safety Report 8243171-1 (Version None)
Quarter: 2012Q1

REPORT INFORMATION
  Report Type: 
  Country: None (occurrence: None)
  Receive Date: 20120329
  Receipt Date: 20120321
  Transmission Date: 20120608
  Serious: Yes (Hospitalization, Other)
  Sender: FDA-Public Use
  Company Number: OM-NOVOPROD-348019

PATIENT
  Age: 59 Year
  Sex: Male
  Weight: 106 kg

DRUGS (13)
  1. VICTOZA [Suspect]
     Dosage: 0.6 MG, QD
     Route: 065
  2. ECOSPRIN [Concomitant]
  3. IRBESARTAN [Concomitant]
  4. BISOPROLOL FUMARATE [Concomitant]
  5. SIMVASTATIN [Concomitant]
  6. VICTOZA [Suspect]
     Dosage: 1.2 MG, QD
     Route: 065
  7. CYMBALTA [Concomitant]
  8. PLAVIX [Concomitant]
  9. NEUROBION                          /00091901/ [Concomitant]
  10. LYRICA [Concomitant]
  11. VICTOZA [Suspect]
     Indication: TYPE 2 DIABETES MELLITUS
     Dosage: 0.6 MG, QD
     Route: 065
  12. VICTOZA [Suspect]
     Dosage: 1.2 MG, QD
     Route: 065
     Dates: end: 20120303
  13. GLUCOPHAGE [Concomitant]

REACTIONS (1)
  - GASTRITIS [None]
